FAERS Safety Report 6656311-2 (Version None)
Quarter: 2010Q1

REPORT INFORMATION
  Report Type: 
  Country: None (occurrence: None)
  Receive Date: 20100329
  Receipt Date: 20100326
  Transmission Date: 20100710
  Serious: Yes (Hospitalization)
  Sender: FDA-Public Use
  Company Number: GXKR2010DE03529

PATIENT
  Age: 71 Year
  Sex: Male
  Weight: 82 kg

DRUGS (3)
  1. DEXAMETHASONE (NGX) [Suspect]
     Dosage: 40 MG/DAILY
     Route: 042
     Dates: start: 20091030, end: 20091103
  2. BORTEZOMIB [Suspect]
     Dosage: 2.56 MG/DAILY
     Route: 042
     Dates: start: 20091030, end: 20091103
  3. CYCLOPHOSPHAMIDE [Suspect]
     Dosage: 1773 MG/DAILY
     Route: 042
     Dates: start: 20091030, end: 20091103

REACTIONS (2)
  - GENERAL PHYSICAL HEALTH DETERIORATION [None]
  - PYREXIA [None]
